FAERS Safety Report 4959171-0 (Version None)
Quarter: 2006Q1

REPORT INFORMATION
  Report Type: 
  Country: None (occurrence: None)
  Receive Date: 20060127
  Receipt Date: 20041228
  Transmission Date: 20060701
  Serious: Yes (Hospitalization)
  Sender: FDA-Public Use
  Company Number: 04-09-1300

PATIENT
  Age: 40 Year
  Sex: Male

DRUGS (5)
  1. CLOZAPINE [Suspect]
     Indication: BULIMIA NERVOSA
     Dosage: 400-550MG QD, ORAL
     Route: 048
     Dates: start: 20030601
  2. CLOZAPINE [Suspect]
     Indication: SCHIZOAFFECTIVE DISORDER
     Dosage: 400-550MG QD, ORAL
     Route: 048
     Dates: start: 20030601
  3. DEPAKOTE [Concomitant]
  4. HYDROXYZINE [Concomitant]
  5. LEXAPRO [Concomitant]

REACTIONS (2)
  - DRUG INEFFECTIVE FOR UNAPPROVED INDICATION [None]
  - LEUKOCYTOSIS [None]
